FAERS Safety Report 10580102 (Version 1)
Quarter: 2014Q4

REPORT INFORMATION
  Report Type: Spontaneous
  Country: US (occurrence: US)
  Receive Date: 20141112
  Receipt Date: 20141112
  Transmission Date: 20150529
  Serious: No
  Sender: FDA-Public Use
  Company Number: US-UPSHER-SMITH LABORATORIES, INC.-14000140

PATIENT
  Age: 47 Year
  Sex: Male

DRUGS (6)
  1. JANTOVEN [Suspect]
     Active Substance: WARFARIN SODIUM
     Indication: HEART VALVE REPLACEMENT
     Dosage: 11.25 MG, QD
     Route: 048
     Dates: start: 201401, end: 201401
  2. TAMSULOSIN HCL [Concomitant]
     Active Substance: TAMSULOSIN
     Dosage: UNK
  3. JANTOVEN [Suspect]
     Active Substance: WARFARIN SODIUM
     Dosage: 15 MG ONE DAY PER WEEK, 11.25 MG ALL OTHER DAYS OF WEEK
     Route: 048
     Dates: start: 201401, end: 20140116
  4. JANTOVEN [Suspect]
     Active Substance: WARFARIN SODIUM
     Dosage: 11.25 MG, QD
     Route: 048
     Dates: start: 20140118
  5. ATENOLOL. [Concomitant]
     Active Substance: ATENOLOL
     Dosage: UNK
  6. MULTIVITAMIN [Concomitant]
     Active Substance: VITAMINS
     Dosage: UNK

REACTIONS (1)
  - International normalised ratio fluctuation [Not Recovered/Not Resolved]

NARRATIVE: CASE EVENT DATE: 201401
